FAERS Safety Report 19467031 (Version 3)
Quarter: 2021Q3

REPORT INFORMATION
  Report Type: Report from Study
  Country: NO (occurrence: NO)
  Receive Date: 20210628
  Receipt Date: 20210715
  Transmission Date: 20211014
  Serious: Yes (Hospitalization)
  Sender: FDA-Public Use
  Company Number: NO-ROCHE-2855147

PATIENT
  Age: 59 Year
  Sex: Female
  Weight: 70.5 kg

DRUGS (4)
  1. ATEZOLIZUMAB. [Suspect]
     Active Substance: ATEZOLIZUMAB
     Indication: SMALL CELL LUNG CANCER
     Dosage: LAST COURSE 15/JUN/2021
     Route: 041
     Dates: start: 20210525
  2. XARELTO [Concomitant]
     Active Substance: RIVAROXABAN
     Indication: PULMONARY EMBOLISM
     Dates: start: 20210511
  3. PLATINUM [Suspect]
     Active Substance: PLATINUM
     Indication: SMALL CELL LUNG CANCER
     Dosage: LAST COURSE 27/APR/2021
     Route: 065
     Dates: start: 20210220
  4. ETOPOSIDE. [Suspect]
     Active Substance: ETOPOSIDE
     Indication: SMALL CELL LUNG CANCER
     Dosage: LAST COURSE 27/APR/2021
     Route: 065
     Dates: start: 20210220

REACTIONS (2)
  - Rib fracture [Recovered/Resolved]
  - Hyperthyroidism [Not Recovered/Not Resolved]

NARRATIVE: CASE EVENT DATE: 20210525
